FAERS Safety Report 7359716-X (Version None)
Quarter: 2011Q1

REPORT INFORMATION
  Report Type: 
  Country: None (occurrence: None)
  Receive Date: 20110317
  Receipt Date: 20081122
  Transmission Date: 20110831
  Serious: Yes (Hospitalization, Other)
  Sender: FDA-Public Use
  Company Number: US-BAYER-200839394NA

PATIENT
  Sex: Male
  Weight: 111.11 kg

DRUGS (16)
  1. VANCOMYCIN [Concomitant]
     Dosage: 1 G, UNK
     Route: 042
     Dates: start: 20060718, end: 20060818
  2. NITROGLYCERIN [Concomitant]
     Dosage: TITRATED
     Route: 041
     Dates: start: 20060718, end: 20060718
  3. PLATELETS [Concomitant]
     Dosage: 2 U, UNK
     Route: 042
     Dates: start: 20060718, end: 20060718
  4. VISIPAQUE [Concomitant]
     Dosage: 100 ML, UNK
     Dates: start: 20060618
  5. DOPAMINE [Concomitant]
     Dosage: TITRATED
     Route: 041
     Dates: start: 20060718, end: 20060718
  6. ACETYLSALICYLIC ACID SRT [Concomitant]
     Indication: ANTICOAGULANT THERAPY
     Dosage: 81 MG, UNK
     Route: 048
     Dates: end: 20060717
  7. CEFUROXIME [Concomitant]
     Dosage: 1.5 G, UNK
     Route: 042
     Dates: start: 20060718, end: 20060718
  8. TRASYLOL [Suspect]
     Indication: CORONARY ARTERY BYPASS
     Dosage: 3 MG, Q1HR
     Route: 042
     Dates: start: 20060718, end: 20060718
  9. VYTORIN [Concomitant]
     Indication: BLOOD CHOLESTEROL INCREASED
     Dosage: 10/40 MG, UNK
     Route: 048
     Dates: end: 20060717
  10. PROTAMINE SULFATE [Concomitant]
     Dosage: UNK
     Route: 042
     Dates: start: 20060718, end: 20060718
  11. INDOCIN [Concomitant]
     Dosage: 50 MG, TID
     Dates: start: 19991012
  12. EPINEPHRINE [Concomitant]
     Dosage: 2.5 MCG/KG/MIN
     Route: 042
     Dates: start: 20060718, end: 20060718
  13. TOPROL-XL [Concomitant]
     Indication: HYPERTENSION
     Dosage: 50 MG, UNK
     Route: 048
     Dates: end: 20060717
  14. PLASMA [Concomitant]
     Dosage: 2 U, UNK
     Route: 042
     Dates: start: 20060718, end: 20060718
  15. TRASYLOL [Suspect]
     Dosage: 50 MG, Q1HR
     Route: 042
     Dates: start: 20060718, end: 20060718
  16. PRIMACOR [Concomitant]
     Dosage: 0.5 MG/HR, UNK
     Route: 042
     Dates: start: 20060718, end: 20060718

REACTIONS (11)
  - RENAL FAILURE [None]
  - STRESS [None]
  - UNEVALUABLE EVENT [None]
  - EMOTIONAL DISTRESS [None]
  - FEAR [None]
  - RENAL IMPAIRMENT [None]
  - RENAL INJURY [None]
  - ANXIETY [None]
  - PAIN [None]
  - ANHEDONIA [None]
  - INJURY [None]
